FAERS Safety Report 9025054 (Version 1)
Quarter: 2013Q1

REPORT INFORMATION
  Report Type: Spontaneous
  Country: GB (occurrence: GB)
  Receive Date: 20130121
  Receipt Date: 20130121
  Transmission Date: 20140127
  Serious: Yes (Other)
  Sender: FDA-Public Use
  Company Number: GB-009507513-1301GBR005653

PATIENT
  Age: 94 Year
  Sex: Male

DRUGS (2)
  1. BCG LIVE [Suspect]
     Indication: BLADDER CANCER
     Route: 043
  2. HORMONES (UNSPECIFIED) [Concomitant]
     Indication: PROSTATE CANCER
     Route: 065

REACTIONS (3)
  - Aortic aneurysm [Unknown]
  - Osteomyelitis [Unknown]
  - Intervertebral discitis [Unknown]
